FAERS Safety Report 11393985 (Version 1)
Quarter: 2015Q3

REPORT INFORMATION
  Report Type: Spontaneous
  Country: KR (occurrence: None)
  Receive Date: 20150817
  Receipt Date: 20150817
  Transmission Date: 20151125
  Serious: Yes (Death, Hospitalization)
  Sender: FDA-Public Use
  Company Number: 2015PL000163

PATIENT
  Age: 38 Year
  Sex: Male

DRUGS (1)
  1. ALLOPURINOL (ALLOPURINOL) TABLET [Suspect]
     Active Substance: ALLOPURINOL
     Indication: HYPERURICAEMIA

REACTIONS (3)
  - Pneumonia [None]
  - Drug reaction with eosinophilia and systemic symptoms [None]
  - Renal impairment [None]
